FAERS Safety Report 18313058 (Version 2)
Quarter: 2021Q2

REPORT INFORMATION
  Report Type: Spontaneous
  Country: JP (occurrence: JP)
  Receive Date: 20200925
  Receipt Date: 20210518
  Transmission Date: 20210717
  Serious: Yes (Hospitalization)
  Sender: FDA-Public Use
  Company Number: JP-JNJFOC-20200932011

PATIENT
  Age: 25 Year
  Sex: Female

DRUGS (2)
  1. XARELTO [Suspect]
     Active Substance: RIVAROXABAN
     Indication: ANTICOAGULANT THERAPY
     Route: 048
  2. TRIQUILAR 28 [Suspect]
     Active Substance: ETHINYL ESTRADIOL\LEVONORGESTREL
     Route: 048

REACTIONS (3)
  - Hypercoagulation [Unknown]
  - Mesenteric vein thrombosis [Unknown]
  - Heavy menstrual bleeding [Unknown]
